FAERS Safety Report 12008889 (Version 1)
Quarter: 2016Q1

REPORT INFORMATION
  Report Type: Spontaneous
  Country: US (occurrence: None)
  Receive Date: 20160203
  Receipt Date: 20160203
  Transmission Date: 20160526
  Serious: Yes (Other)
  Sender: FDA-Public Use
  Company Number: None

PATIENT
  Age: 63 Year
  Sex: Female
  Weight: 76.2 kg

DRUGS (1)
  1. EPIDERAL CORTICOSTEROID INJECTION [Suspect]
     Active Substance: CORTICOSTEROID NOS

REACTIONS (2)
  - Drug ineffective [None]
  - Drug hypersensitivity [None]

NARRATIVE: CASE EVENT DATE: 20160111
